FAERS Safety Report 18905219 (Version 1)
Quarter: 2021Q1

REPORT INFORMATION
  Report Type: Spontaneous
  Country: BR (occurrence: BR)
  Receive Date: 20210217
  Receipt Date: 20210217
  Transmission Date: 20210420
  Serious: Yes (Other)
  Sender: FDA-Public Use
  Company Number: BR-SA-2021SA048821

PATIENT
  Age: 71 Year
  Sex: Female

DRUGS (12)
  1. LANTUS SOLOSTAR [Suspect]
     Active Substance: INSULIN GLARGINE
     Indication: DIABETES MELLITUS
     Dosage: 40 IU, BID (40 IU IN THE MORNING AND 40 IU AT NIGHT)
     Route: 065
  2. DORFLEX [Concomitant]
     Active Substance: CAFFEINE\DIPYRONE\ORPHENADRINE
     Indication: PAIN
     Dosage: UNK
     Route: 065
  3. ATROVERAN [ATROPA BELLADONNA;HYOSCYAMUS NIGER;PAPAVERINE] [Concomitant]
     Indication: PAIN
     Dosage: UNK
     Route: 065
  4. DAFLON 1000 [Concomitant]
     Dosage: UNK
     Route: 065
  5. GLIFAGE [Concomitant]
     Active Substance: METFORMIN HYDROCHLORIDE
     Indication: DIABETES MELLITUS
     Dosage: 500 MG, BID (2 TABLETS PER DAY)
     Route: 065
  6. HYDROCHLOROTHIAZIDE. [Concomitant]
     Active Substance: HYDROCHLOROTHIAZIDE
     Indication: BRONCHITIS
     Dosage: 1 DF, QD
     Route: 065
  7. APIDRA [Suspect]
     Active Substance: INSULIN GLULISINE
     Indication: DIABETES MELLITUS
     Dosage: 10 IU IN THE MORNING AND 10 IU AT NIGHT
     Route: 065
  8. ENALAPRIL [Concomitant]
     Active Substance: ENALAPRIL
     Indication: BRONCHITIS
     Dosage: 10 MG, QID
     Route: 065
  9. BROMOPRIDE [Concomitant]
     Active Substance: BROMOPRIDE
     Indication: ABDOMINAL DISCOMFORT
  10. FORXIGA [Concomitant]
     Active Substance: DAPAGLIFLOZIN
     Indication: DIABETES MELLITUS
     Dosage: 1 TABLET A DAY AT LUNCH
     Route: 065
  11. BROMOPRIDE [Concomitant]
     Active Substance: BROMOPRIDE
     Indication: BRONCHITIS
     Dosage: 4 DF, QD
     Route: 065
  12. SIMETHICONE (DIMETHICONE) [Concomitant]
     Active Substance: DIMETHICONE
     Indication: FLATULENCE
     Dosage: UNK
     Route: 065

REACTIONS (11)
  - Inappropriate schedule of product administration [Unknown]
  - Nervousness [Unknown]
  - Tremor [Unknown]
  - Asthenia [Unknown]
  - Product storage error [Unknown]
  - Thrombosis [Unknown]
  - Anxiety [Unknown]
  - Gait disturbance [Unknown]
  - Pain in extremity [Unknown]
  - Injection site discolouration [Recovered/Resolved]
  - Blood glucose increased [Unknown]
